FAERS Safety Report 19400677 (Version 2)
Quarter: 2021Q2

REPORT INFORMATION
  Report Type: Spontaneous
  Country: US (occurrence: US)
  Receive Date: 20210610
  Receipt Date: 20210621
  Transmission Date: 20210717
  Serious: Yes (Hospitalization)
  Sender: FDA-Public Use
  Company Number: US-TEVA-2021-US-1920130

PATIENT
  Age: 55 Year
  Sex: Male

DRUGS (1)
  1. PREDNISONE. [Suspect]
     Active Substance: PREDNISONE
     Indication: BACK PAIN
     Dosage: TAPER FOR 3 WEEKS
     Route: 065

REACTIONS (2)
  - Mycobacterium abscessus infection [Recovering/Resolving]
  - Endocarditis [Recovering/Resolving]
